FAERS Safety Report 18103116 (Version 1)
Quarter: 2020Q3

REPORT INFORMATION
  Report Type: Spontaneous
  Country: US (occurrence: US)
  Receive Date: 20200801
  Receipt Date: 20200801
  Transmission Date: 20201103
  Serious: Yes (Other)
  Sender: FDA-Public Use
  Company Number: None

PATIENT
  Age: 25 Year
  Sex: Male
  Weight: 89.3 kg

DRUGS (8)
  1. ASCORBIC ACID IV [Concomitant]
     Dates: start: 20200728
  2. DEXAMETHASONE 6 MG IV [Concomitant]
     Dates: start: 20200728
  3. ENOXAPARIN 1 MG/KG SUBQ BID [Concomitant]
     Dates: start: 20200728
  4. REMDESIVIR. [Suspect]
     Active Substance: REMDESIVIR
     Indication: SARS-COV-2 TEST POSITIVE
     Route: 042
     Dates: start: 20200728, end: 20200731
  5. ACETYLCYSTEINE. [Concomitant]
     Active Substance: ACETYLCYSTEINE
     Dates: start: 20200728
  6. AZITHROMYCIN 500 MG IV [Concomitant]
     Dates: start: 20200728
  7. ZINC SULFATE 200 MG PO BID [Concomitant]
     Dates: start: 20200728
  8. DOCUSATE 100 MG PO BID [Concomitant]
     Dates: start: 20200728

REACTIONS (1)
  - Alanine aminotransferase increased [None]

NARRATIVE: CASE EVENT DATE: 20200801
